FAERS Safety Report 23467610 (Version 1)
Quarter: 2024Q1

REPORT INFORMATION
  Report Type: Spontaneous
  Country: US (occurrence: US)
  Receive Date: 20240201
  Receipt Date: 20240201
  Transmission Date: 20240410
  Serious: No
  Sender: FDA-Public Use
  Company Number: US-Covis Pharma GmbH-2024COV00062

PATIENT
  Age: 70 Year
  Sex: Male

DRUGS (1)
  1. LANOXIN [Suspect]
     Active Substance: DIGOXIN
     Route: 042

REACTIONS (1)
  - Blood pressure decreased [Unknown]
